FAERS Safety Report 4572454-1 (Version None)
Quarter: 2005Q1

REPORT INFORMATION
  Report Type: 
  Country: None (occurrence: None)
  Receive Date: 20050207
  Receipt Date: 20050125
  Transmission Date: 20050727
  Serious: Yes (Life-Threatening, Other)
  Sender: FDA-Public Use
  Company Number: GB-NOVOPROD-241839

PATIENT
  Age: 72 Year
  Sex: Female
  Weight: 70 kg

DRUGS (11)
  1. GLUCAGEN [Suspect]
     Indication: HYPOGLYCAEMIA
     Route: 030
     Dates: start: 20041222
  2. ATORVASTATIN [Concomitant]
     Dosage: 80 MG, QD
  3. CLOPIDOGREL [Concomitant]
     Dosage: 75 MG, QD
  4. ISOSORBIDE [Concomitant]
     Dosage: 60 MG, UNK
  5. METFORMIN HCL [Concomitant]
     Dosage: 850 MG, BID
  6. DOXAZOSIN [Concomitant]
     Dosage: 2 MG, BID
     Route: 048
  7. ASPIRIN [Concomitant]
     Dosage: 150 MG, QD
     Route: 048
  8. ENALAPRIL MALEATE [Concomitant]
     Dosage: 10 MG, BID
     Route: 048
  9. DILTIAZEM [Concomitant]
     Dosage: 90 MG, BID
     Route: 048
  10. FRUSEMIDE [Concomitant]
     Dosage: 100 MG, QD
  11. VITAMIN B-12 [Concomitant]

REACTIONS (4)
  - CARDIAC ARREST [None]
  - CIRCULATORY COLLAPSE [None]
  - FEELING ABNORMAL [None]
  - VENTRICULAR FIBRILLATION [None]
